FAERS Safety Report 4695720-8 (Version None)
Quarter: 2005Q2

REPORT INFORMATION
  Report Type: 
  Country: None (occurrence: None)
  Receive Date: 20050621
  Receipt Date: 20050606
  Transmission Date: 20051028
  Serious: Yes (Hospitalization)
  Sender: FDA-Public Use
  Company Number: IT-JNJFOC-20050602275

PATIENT
  Sex: Female

DRUGS (12)
  1. REMICADE [Suspect]
     Indication: RHEUMATOID ARTHRITIS
     Route: 042
  2. METHOTREXATE [Suspect]
     Indication: RHEUMATOID ARTHRITIS
     Route: 030
  3. MEDROL [Concomitant]
     Route: 049
  4. FOLINA [Concomitant]
     Route: 049
  5. CACIT [Concomitant]
     Route: 049
  6. CACIT [Concomitant]
     Route: 049
  7. CLASTEON [Concomitant]
     Route: 030
  8. CLINORIL [Concomitant]
     Route: 049
  9. BENEXOL [Concomitant]
     Route: 049
  10. BENEXOL [Concomitant]
     Route: 049
  11. SERETIDE [Concomitant]
     Route: 065
  12. SERETIDE [Concomitant]
     Route: 065

REACTIONS (4)
  - ANAEMIA [None]
  - DRUG INTERACTION [None]
  - INTESTINAL ADENOCARCINOMA [None]
  - THERAPY NON-RESPONDER [None]
